FAERS Safety Report 10668488 (Version 1)
Quarter: 2014Q4

REPORT INFORMATION
  Report Type: Spontaneous
  Country: US (occurrence: US)
  Receive Date: 20141222
  Receipt Date: 20141222
  Transmission Date: 20150529
  Serious: Yes (Hospitalization, Other)
  Sender: FDA-Public Use
  Company Number: US-GILEAD-2014-0127940

PATIENT
  Age: 58 Year
  Sex: Female

DRUGS (12)
  1. DIGOXIN. [Concomitant]
     Active Substance: DIGOXIN
  2. PROZAC [Concomitant]
     Active Substance: FLUOXETINE HYDROCHLORIDE
  3. NADOLOL. [Concomitant]
     Active Substance: NADOLOL
  4. LETAIRIS [Suspect]
     Active Substance: AMBRISENTAN
     Indication: COR PULMONALE CHRONIC
     Dosage: 5 MG, QD
     Route: 065
     Dates: start: 20140806
  5. ULTRAM [Concomitant]
     Active Substance: TRAMADOL HYDROCHLORIDE
  6. TYVASO [Concomitant]
     Active Substance: TREPROSTINIL
  7. COUMADIN [Concomitant]
     Active Substance: WARFARIN SODIUM
  8. LASIX [Concomitant]
     Active Substance: FUROSEMIDE
  9. ADCIRCA [Concomitant]
     Active Substance: TADALAFIL
  10. FOLIC ACID. [Concomitant]
     Active Substance: FOLIC ACID
  11. SPIRONOLACTONE. [Concomitant]
     Active Substance: SPIRONOLACTONE
  12. PANTOPRAZOLE [Concomitant]
     Active Substance: PANTOPRAZOLE SODIUM

REACTIONS (1)
  - Pneumonia [Not Recovered/Not Resolved]

NARRATIVE: CASE EVENT DATE: 20141128
